FAERS Safety Report 23743684 (Version 45)
Quarter: 2025Q2

REPORT INFORMATION
  Report Type: Report from Study
  Country: CO (occurrence: CO)
  Receive Date: 20240415
  Receipt Date: 20250627
  Transmission Date: 20250717
  Serious: Yes (Other)
  Sender: TAKEDA
  Company Number: CO-TAKEDA-CO202000109

PATIENT
  Age: 17 Year
  Sex: Male
  Weight: 23 kg

DRUGS (5)
  1. IDURSULFASE [Suspect]
     Active Substance: IDURSULFASE
     Indication: Mucopolysaccharidosis II
     Dosage: 12 MILLIGRAM, 1/WEEK
     Dates: start: 20140124
  2. IDURSULFASE [Suspect]
     Active Substance: IDURSULFASE
     Indication: Mucopolysaccharidosis
     Dosage: 12 MILLIGRAM, 1/WEEK
     Dates: start: 20140224
  3. IDURSULFASE [Suspect]
     Active Substance: IDURSULFASE
     Dosage: 12 MILLIGRAM, 1/WEEK
  4. IDURSULFASE [Suspect]
     Active Substance: IDURSULFASE
     Dosage: 12 MILLIGRAM, 1/WEEK
  5. IDURSULFASE [Suspect]
     Active Substance: IDURSULFASE
     Dosage: 12 MILLIGRAM, 1/WEEK
     Dates: start: 20240224

REACTIONS (20)
  - Oxygen saturation decreased [Unknown]
  - Influenza [Recovering/Resolving]
  - Weight decreased [Unknown]
  - Nasal congestion [Recovering/Resolving]
  - Body height decreased [Unknown]
  - Treatment noncompliance [Unknown]
  - Obstruction [Unknown]
  - Product availability issue [Unknown]
  - Incorrect dose administered [Unknown]
  - Product prescribing error [Unknown]
  - Product dose omission issue [Unknown]
  - Insurance issue [Unknown]
  - Inappropriate schedule of product administration [Unknown]
  - Incorrect route of product administration [Unknown]
  - Product use issue [Unknown]
  - Bronchitis [Unknown]
  - Asthenia [Unknown]
  - Respiratory symptom [Unknown]
  - Diarrhoea [Recovering/Resolving]
  - Pyrexia [Unknown]

NARRATIVE: CASE EVENT DATE: 20191201
